FAERS Safety Report 22271207 (Version 1)
Quarter: 2023Q2

REPORT INFORMATION
  Report Type: Spontaneous
  Country: US (occurrence: None)
  Receive Date: 20230428
  Receipt Date: 20230428
  Transmission Date: 20230722
  Serious: No
  Sender: FDA-Public Use
  Company Number: None

PATIENT
  Age: 39 Year
  Sex: Female

DRUGS (1)
  1. HYDROXYPROGESTERONE CAPROATE [Suspect]
     Active Substance: HYDROXYPROGESTERONE CAPROATE
     Route: 030
     Dates: start: 202303, end: 202304

REACTIONS (2)
  - Recalled product administered [None]
  - Therapy cessation [None]

NARRATIVE: CASE EVENT DATE: 20230428
